FAERS Safety Report 5253268-6 (Version None)
Quarter: 2007Q1

REPORT INFORMATION
  Report Type: 
  Country: None (occurrence: None)
  Receive Date: 20070301
  Receipt Date: 20070220
  Transmission Date: 20070707
  Serious: Yes (Death, Hospitalization, Other)
  Sender: FDA-Public Use
  Company Number: US-ELI_LILLY_AND_COMPANY-US200601000952

PATIENT
  Age: 64 Year
  Sex: Female
  Weight: 145.12 kg

DRUGS (3)
  1. TEGRETOL [Concomitant]
     Indication: CONVULSION
  2. ACTONEL [Concomitant]
     Dates: start: 20040101
  3. FORTEO [Suspect]
     Indication: OSTEOPOROSIS
     Dosage: 20 UG, DAILY (1/D)
     Dates: start: 20050901, end: 20051001

REACTIONS (7)
  - ABASIA [None]
  - ACTIVITIES OF DAILY LIVING IMPAIRED [None]
  - BONE NEOPLASM [None]
  - FALL [None]
  - MUSCULAR WEAKNESS [None]
  - SARCOMA [None]
  - WEIGHT DECREASED [None]
